FAERS Safety Report 6706804 (Version 4)
Quarter: 2013Q2

REPORT INFORMATION
  Report Type: Report from Study
  Country: CA (occurrence: CA)
  Receive Date: 20080722
  Receipt Date: 20130605
  Transmission Date: 20140414
  Serious: Yes (Life-Threatening, Hospitalization, Other)
  Sender: FDA-Public Use
  Company Number: CA-PFIZER INC-2008057536

PATIENT
  Age: 52 Year
  Sex: Female
  Weight: 68 kg

DRUGS (7)
  1. SUNITINIB MALATE [Suspect]
     Indication: BREAST CANCER
     Dosage: 37.5 MG, 1X/DAY
     Route: 048
     Dates: start: 20070808, end: 20070903
  2. SUNITINIB MALATE [Suspect]
     Dosage: 50 MG, DAILY
  3. TRASTUZUMAB [Suspect]
     Indication: BREAST CANCER
     Dosage: 8 MG/KG, UNK
     Route: 042
     Dates: start: 20070808
  4. TRASTUZUMAB [Suspect]
     Dosage: 6 MG/KG, EVERY 3 WEEKS
  5. TYLENOL [Concomitant]
     Dosage: UNK
     Route: 048
     Dates: start: 1970
  6. MAALOX [Concomitant]
     Route: 048
     Dates: start: 20070814, end: 20070904
  7. LOSEC [Concomitant]
     Indication: DYSPEPSIA
     Dosage: UNK
     Route: 048
     Dates: start: 20070827, end: 20070905

REACTIONS (2)
  - Thrombocytopenic purpura [Recovered/Resolved]
  - Epistaxis [Recovered/Resolved]
